FAERS Safety Report 24695526 (Version 1)
Quarter: 2024Q4

REPORT INFORMATION
  Report Type: Spontaneous
  Country: CN (occurrence: CN)
  Receive Date: 20241204
  Receipt Date: 20241204
  Transmission Date: 20250115
  Serious: Yes (Hospitalization, Other)
  Sender: ALKEM
  Company Number: None

PATIENT
  Age: 65 Year
  Sex: Male

DRUGS (6)
  1. MYCOPHENOLATE MOFETIL [Suspect]
     Active Substance: MYCOPHENOLATE MOFETIL
     Indication: Immunosuppressant drug therapy
     Dosage: 0.5 GRAM, BID (EVERY 12 HOURS)
     Route: 065
  2. MYCOPHENOLATE MOFETIL [Suspect]
     Active Substance: MYCOPHENOLATE MOFETIL
     Dosage: UNK (RECHALLENGE DOSE)
     Route: 065
  3. TACROLIMUS [Suspect]
     Active Substance: TACROLIMUS
     Indication: Immunosuppressant drug therapy
     Dosage: 1 MILLIGRAM, BID (EVERY 12 HOURS)
     Route: 065
  4. TACROLIMUS [Suspect]
     Active Substance: TACROLIMUS
     Dosage: UNK (RECHALLENGE DOSE)
     Route: 065
  5. PREDNISONE [Suspect]
     Active Substance: PREDNISONE
     Indication: Immunosuppressant drug therapy
     Dosage: 5 MILLIGRAM, QD (EVERY 1 DAY)
     Route: 065
  6. PREDNISONE [Suspect]
     Active Substance: PREDNISONE
     Dosage: UNK (PREDNISONE ACETATE)
     Route: 048

REACTIONS (8)
  - Pneumocystis jirovecii infection [Recovering/Resolving]
  - Aspergillus infection [Recovering/Resolving]
  - Pneumocystis jirovecii pneumonia [Recovering/Resolving]
  - Cytomegalovirus infection [Recovering/Resolving]
  - Epstein-Barr virus infection [Recovering/Resolving]
  - COVID-19 [Recovered/Resolved]
  - Herpes virus infection [Recovering/Resolving]
  - Human polyomavirus infection [Recovering/Resolving]

NARRATIVE: CASE EVENT DATE: 20230101
